FAERS Safety Report 23573941 (Version 1)
Quarter: 2024Q1

REPORT INFORMATION
  Report Type: Other
  Country: CA (occurrence: None)
  Receive Date: 20240228
  Receipt Date: 20240228
  Transmission Date: 20240410
  Serious: Yes (Hospitalization, Other)
  Sender: FDA-Public Use
  Company Number: CA-ROCHE-3513044

PATIENT

DRUGS (1)
  1. OCRELIZUMAB [Suspect]
     Active Substance: OCRELIZUMAB
     Indication: Multiple sclerosis
     Route: 042

REACTIONS (16)
  - Urosepsis [Unknown]
  - Urinary tract infection [Unknown]
  - Cellulitis [Unknown]
  - Pneumonia [Unknown]
  - Influenza [Unknown]
  - COVID-19 [Unknown]
  - Herpes zoster [Unknown]
  - Appendicitis [Unknown]
  - Diverticulitis [Unknown]
  - Abscess limb [Unknown]
  - Pyelonephritis [Unknown]
  - Lymphopenia [Unknown]
  - Drug intolerance [Unknown]
  - Treatment failure [Unknown]
  - Hypogammaglobulinaemia [Unknown]
  - Neutropenia [Unknown]
